FAERS Safety Report 8764706 (Version 1)
Quarter: 2012Q4

REPORT INFORMATION
  Report Type: 
  Country: CA (occurrence: CA)
  Receive Date: 20120831
  Receipt Date: 20120831
  Transmission Date: 20130627
  Serious: Yes (Other)
  Sender: FDA-Public Use
  Company Number: CA-009507513-1208CAN012492

PATIENT

DRUGS (4)
  1. PEGETRON [Suspect]
     Indication: HEPATITIS C
     Dosage: UNK
  2. PEGETRON [Suspect]
     Dosage: UNK
     Dates: start: 201204
  3. VICTRELIS [Suspect]
     Indication: HEPATITIS C
     Dosage: UNK
     Route: 048
  4. VICTRELIS [Suspect]
     Dosage: UNK
     Dates: start: 201204

REACTIONS (3)
  - Coma [Recovered/Resolved]
  - Pneumonia [Unknown]
  - Amnesia [Unknown]
